FAERS Safety Report 8265188-3 (Version None)
Quarter: 2012Q2

REPORT INFORMATION
  Report Type: 
  Country: None (occurrence: None)
  Receive Date: 20120403
  Receipt Date: 20120323
  Transmission Date: 20120825
  Serious: Yes (Death)
  Sender: FDA-Public Use
  Company Number: DSA_55783_2012

PATIENT
  Age: 52 Year
  Sex: Male

DRUGS (12)
  1. LACTULOSE [Concomitant]
  2. DEXAMETHASONE [Concomitant]
  3. MANNITOL [Concomitant]
  4. EUPHYLLINE /00012201/ [Concomitant]
  5. HEPATIL [Concomitant]
  6. METRONIDAZOLE [Suspect]
     Indication: COMA HEPATIC
     Dosage: DF
  7. LASIX [Suspect]
     Indication: COMA HEPATIC
     Dosage: DF
  8. QUAMATEL [Concomitant]
  9. OXYGEN [Concomitant]
  10. INFUSOTHERAPY (ALL OTHER THERAPEUTIC PRODUCTS) [Concomitant]
  11. DIAZEPAM [Suspect]
     Indication: COMA HEPATIC
     Dosage: DF
  12. REFLIN [Concomitant]

REACTIONS (1)
  - DRUG INEFFECTIVE [None]
